FAERS Safety Report 7419209-8 (Version None)
Quarter: 2011Q2

REPORT INFORMATION
  Report Type: 
  Country: None (occurrence: None)
  Receive Date: 20110415
  Receipt Date: 20110411
  Transmission Date: 20111010
  Serious: Yes (Life-Threatening)
  Sender: FDA-Public Use
  Company Number: FR-ASTRAZENECA-2011SE20554

PATIENT
  Age: 25916 Day
  Sex: Female

DRUGS (6)
  1. VANCOMYCINE [Suspect]
     Indication: ANTIBIOTIC PROPHYLAXIS
     Route: 042
     Dates: start: 20101211, end: 20101211
  2. DIPRIVAN [Suspect]
     Indication: INDUCTION OF ANAESTHESIA
     Dosage: ONCE
     Route: 042
     Dates: start: 20101211, end: 20101211
  3. SUFENTANIL [Suspect]
     Indication: INDUCTION OF ANAESTHESIA
     Dosage: ONCE
     Route: 042
     Dates: start: 20101211, end: 20101211
  4. TRACRIUM [Suspect]
     Indication: INDUCTION OF ANAESTHESIA
     Dosage: ONCE
     Route: 042
     Dates: start: 20101211, end: 20101211
  5. OROCAL [Concomitant]
     Route: 048
  6. ACTONEL [Concomitant]
     Route: 048

REACTIONS (1)
  - ANAPHYLACTIC SHOCK [None]
